FAERS Safety Report 8216073-4 (Version None)
Quarter: 2012Q1

REPORT INFORMATION
  Report Type: 
  Country: None (occurrence: None)
  Receive Date: 20120316
  Receipt Date: 20120309
  Transmission Date: 20120608
  Serious: Yes (Death, Other)
  Sender: FDA-Public Use
  Company Number: JP-VERTEX PHARMACEUTICALS INC.-AE-2012-001651

PATIENT
  Age: 64 Year
  Sex: Male

DRUGS (9)
  1. REBETOL [Concomitant]
     Indication: HEPATITIS C
     Route: 048
     Dates: start: 20120106, end: 20120120
  2. HALCION [Concomitant]
     Route: 048
  3. AMOBAN [Concomitant]
     Route: 048
  4. TELAVIC (TELAPREVIR) [Suspect]
     Route: 048
     Dates: start: 20120120
  5. LENDORMIN [Concomitant]
     Route: 048
  6. PEGINTERFERON ALFA-2B [Concomitant]
     Indication: HEPATITIS C
     Route: 058
     Dates: start: 20120106
  7. REBETOL [Concomitant]
     Route: 048
     Dates: start: 20120120
  8. TELAVIC (TELAPREVIR) [Suspect]
     Indication: HEPATITIS C
     Route: 048
     Dates: start: 20120106, end: 20120119
  9. ESTAZOLAM [Concomitant]
     Route: 048

REACTIONS (2)
  - ANAEMIA [None]
  - SUDDEN DEATH [None]
